FAERS Safety Report 5442710-3 (Version None)
Quarter: 2007Q3

REPORT INFORMATION
  Report Type: 
  Country: None (occurrence: None)
  Receive Date: 20070904
  Receipt Date: 20070822
  Transmission Date: 20080115
  Serious: Yes (Hospitalization)
  Sender: FDA-Public Use
  Company Number: CL-AMGEN-US229009

PATIENT
  Sex: Male

DRUGS (7)
  1. PANITUMUMAB [Suspect]
     Indication: COLORECTAL CANCER
     Route: 042
     Dates: start: 20070515
  2. OXALIPLATIN [Concomitant]
     Route: 065
     Dates: start: 20070515
  3. LEUCOVORIN CALCIUM [Concomitant]
     Route: 065
     Dates: start: 20070515
  4. 5-FU [Concomitant]
     Route: 065
     Dates: start: 20070515
  5. TRAMADOL HCL [Concomitant]
     Route: 065
  6. PARACETAMOL [Concomitant]
     Route: 065
  7. LACTULOSE [Concomitant]
     Route: 065

REACTIONS (4)
  - GROIN ABSCESS [None]
  - LARGE INTESTINE PERFORATION [None]
  - NEUTROPENIA [None]
  - VENOUS THROMBOSIS [None]
